FAERS Safety Report 12452777 (Version 1)
Quarter: 2016Q2

REPORT INFORMATION
  Report Type: Spontaneous
  Country: CA (occurrence: CA)
  Receive Date: 20160609
  Receipt Date: 20160609
  Transmission Date: 20160815
  Serious: Yes (Other)
  Sender: FDA-Public Use
  Company Number: CA-PFIZER INC-2016280590

PATIENT
  Age: 76 Year
  Sex: Male

DRUGS (1)
  1. SUNITINIB MALATE. [Suspect]
     Active Substance: SUNITINIB MALATE
     Indication: METASTATIC RENAL CELL CARCINOMA
     Dosage: 62.5 MG, DAILY, 2 WEEKS ON, 1 WEEK OFF

REACTIONS (3)
  - Bradycardia [Unknown]
  - Palmar-plantar erythrodysaesthesia syndrome [Unknown]
  - Aphonia [Unknown]
